FAERS Safety Report 4680401-7 (Version None)
Quarter: 2005Q2

REPORT INFORMATION
  Report Type: 
  Country: None (occurrence: None)
  Receive Date: 20050601
  Receipt Date: 20050513
  Transmission Date: 20051028
  Serious: Yes (Hospitalization)
  Sender: FDA-Public Use
  Company Number: EWC050544076

PATIENT
  Age: 49 Year
  Sex: Female
  Weight: 84 kg

DRUGS (2)
  1. ZYPREXA [Suspect]
     Dosage: 1 DSG FORM/1 DAY
  2. TRILAFON (PERPHENAZINE ENANTATE) [Concomitant]

REACTIONS (6)
  - AFRICAN TRYPANOSOMIASIS [None]
  - CONSTIPATION [None]
  - DIARRHOEA [None]
  - FEELING DRUNK [None]
  - NAUSEA [None]
  - SOMNOLENCE [None]
